FAERS Safety Report 4377405-0 (Version None)
Quarter: 2004Q2

REPORT INFORMATION
  Report Type: 
  Country: None (occurrence: None)
  Receive Date: 20040609
  Receipt Date: 20040429
  Transmission Date: 20050107
  Serious: No
  Sender: FDA-Public Use
  Company Number: 2004211849US

PATIENT
  Age: 79 Year
  Sex: Female

DRUGS (1)
  1. BEXTRA [Suspect]
     Indication: ARTHRITIS
     Dosage: 10 MG, QD,
     Dates: start: 19250414

REACTIONS (4)
  - ABDOMINAL PAIN [None]
  - CHROMATURIA [None]
  - DYSPEPSIA [None]
  - NAUSEA [None]
